FAERS Safety Report 16817851 (Version 1)
Quarter: 2019Q3

REPORT INFORMATION
  Report Type: Spontaneous
  Country: AU (occurrence: AU)
  Receive Date: 20190917
  Receipt Date: 20190917
  Transmission Date: 20191005
  Serious: Yes (Death, Other)
  Sender: FDA-Public Use
  Company Number: AU-009507513-1909AUS000065

PATIENT
  Age: 63 Year

DRUGS (2)
  1. PEMBROLIZUMAB. [Suspect]
     Active Substance: PEMBROLIZUMAB
     Dosage: 150 MILLIGRAM, Q3W
     Route: 042
     Dates: start: 20190313, end: 2019
  2. PEMBROLIZUMAB. [Suspect]
     Active Substance: PEMBROLIZUMAB
     Indication: SQUAMOUS CELL CARCINOMA OF HEAD AND NECK
     Dosage: 150 MILLIGRAM, Q3W (3 WEEKLY)
     Route: 042
     Dates: start: 20180305, end: 20181122

REACTIONS (2)
  - Malignant neoplasm progression [Not Recovered/Not Resolved]
  - Death [Fatal]

NARRATIVE: CASE EVENT DATE: 201811
